FAERS Safety Report 9245303 (Version 1)
Quarter: 2013Q1

REPORT INFORMATION
  Report Type: Spontaneous
  Country: US (occurrence: None)
  Receive Date: 20121130
  Receipt Date: 20121130
  Transmission Date: 20140127
  Serious: Yes (Hospitalization)
  Sender: FDA-Public Use
  Company Number: 356394

PATIENT
  Age: 36 Year
  Sex: Male
  Weight: 83.9 kg

DRUGS (1)
  1. NOVOLOG FLEXPEN [Suspect]
     Indication: TYPE 1 DIABETES MELLITUS
     Dosage: SLIDING SCALE, SUBCUTAN.-PUMP
     Route: 058
     Dates: start: 20120711, end: 20120712

REACTIONS (2)
  - Drug administration error [None]
  - Diabetic ketoacidosis [None]
